FAERS Safety Report 9131782 (Version 1)
Quarter: 2013Q1

REPORT INFORMATION
  Report Type: Report from Study
  Country: US (occurrence: US)
  Receive Date: 20130301
  Receipt Date: 20130301
  Transmission Date: 20140127
  Serious: No
  Sender: FDA-Public Use
  Company Number: US-MYLANLABS-2012S1014245

PATIENT
  Age: 24 Year
  Sex: Male

DRUGS (1)
  1. AMNESTEEM CAPSULES [Suspect]

REACTIONS (3)
  - Mood swings [Not Recovered/Not Resolved]
  - Personality change [Not Recovered/Not Resolved]
  - Abnormal behaviour [Not Recovered/Not Resolved]
